FAERS Safety Report 9413447 (Version 1)
Quarter: 2013Q3

REPORT INFORMATION
  Report Type: Spontaneous
  Country: BR (occurrence: None)
  Receive Date: 20130717
  Receipt Date: 20130717
  Transmission Date: 20140515
  Serious: Yes (Hospitalization)
  Sender: FDA-Public Use
  Company Number: DSJ-2013-15809

PATIENT
  Age: 88 Year
  Sex: Female
  Weight: 77 kg

DRUGS (4)
  1. BENICAR (OLMESARTAN MEDOXOMIL) (TABLET) (OLMESARTAN MEDOXOMIL) [Suspect]
     Indication: HYPERTENSION
     Dosage: 20 MG 1IN1 D
     Route: 048
     Dates: start: 2007, end: 201301
  2. LEVOTHYROXINE SODIUM (LEVOTHYROXINE SODIUM) (LEVOTHYROXINE SODIUM) [Concomitant]
  3. VITAMIN D (ERGOCALCIFEROL) (ERGOCALIFEROL) [Concomitant]
  4. HYDRALAZINE (HYDRALAZINE) (HYDRALAZINE) [Concomitant]

REACTIONS (3)
  - Chest pain [None]
  - Angioplasty [None]
  - Overdose [None]
